FAERS Safety Report 18643376 (Version 1)
Quarter: 2020Q4

REPORT INFORMATION
  Report Type: Spontaneous
  Country: US (occurrence: US)
  Receive Date: 20201221
  Receipt Date: 20201221
  Transmission Date: 20210114
  Serious: No
  Sender: FDA-Public Use
  Company Number: None

PATIENT
  Age: 85 Year
  Sex: Female
  Weight: 65.5 kg

DRUGS (13)
  1. FLURBIPROFEN. [Concomitant]
     Active Substance: FLURBIPROFEN
  2. FOSAMAX [Concomitant]
     Active Substance: ALENDRONATE SODIUM
  3. NORVASC [Concomitant]
     Active Substance: AMLODIPINE BESYLATE
  4. BRAFTOVI [Suspect]
     Active Substance: ENCORAFENIB
     Indication: COLON CANCER
     Route: 048
     Dates: start: 20201014, end: 20201221
  5. GLUCOSAMINE HCL [Concomitant]
     Active Substance: GLUCOSAMINE
  6. PREDNISOLONE ACETATE. [Concomitant]
     Active Substance: PREDNISOLONE ACETATE
  7. ASACOL HD [Concomitant]
     Active Substance: MESALAMINE
  8. ASPIRIN 81 [Concomitant]
     Active Substance: ASPIRIN
  9. LOSARTAN POTASSIUM. [Concomitant]
     Active Substance: LOSARTAN POTASSIUM
  10. MULTIVITAMIN [Concomitant]
     Active Substance: VITAMINS
  11. OCUVITE EXTRA [Concomitant]
  12. CELEXA [Concomitant]
     Active Substance: CITALOPRAM HYDROBROMIDE
  13. SIMVASTATIN. [Concomitant]
     Active Substance: SIMVASTATIN

REACTIONS (1)
  - Hospice care [None]

NARRATIVE: CASE EVENT DATE: 20201221
